FAERS Safety Report 9557476 (Version 1)
Quarter: 2013Q3

REPORT INFORMATION
  Report Type: Spontaneous
  Country: US (occurrence: None)
  Receive Date: 20130726
  Receipt Date: 20130726
  Transmission Date: 20140515
  Serious: Yes (Hospitalization)
  Sender: FDA-Public Use
  Company Number: UTC-019840

PATIENT
  Age: 41 Year
  Sex: Female
  Weight: 75.9 kg

DRUGS (3)
  1. REMODULIN [Suspect]
     Indication: PULMONARY ARTERIAL HYPERTENSION
     Dosage: 1 IN 1 MIN.
     Route: 058
     Dates: start: 20111212
  2. ADCIRCA (TADALAFIL) [Concomitant]
  3. DIURETICS (DIURETICS) [Concomitant]

REACTIONS (1)
  - Pulmonary arterial hypertension [None]
